FAERS Safety Report 13093274 (Version 2)
Quarter: 2017Q1

REPORT INFORMATION
  Report Type: Spontaneous
  Country: US (occurrence: US)
  Receive Date: 20170106
  Receipt Date: 20170116
  Transmission Date: 20170428
  Serious: Yes (Life-Threatening, Hospitalization, Other)
  Sender: FDA-Public Use
  Company Number: US-DRREDDYS-USA/USA/17/0086111

PATIENT
  Age: 15 Year
  Sex: Female

DRUGS (2)
  1. FLUOXETINE [Suspect]
     Active Substance: FLUOXETINE HYDROCHLORIDE
     Indication: MAJOR DEPRESSION
     Route: 065
  2. FLUOXETINE [Suspect]
     Active Substance: FLUOXETINE HYDROCHLORIDE
     Dosage: 45-60 PILLS; OVERDOSE; ACTUAL PILL INTAKE DIFFICULT TO DETERMINE WITH CERTAINTY
     Route: 065

REACTIONS (3)
  - Intentional overdose [Unknown]
  - Vomiting [Recovering/Resolving]
  - Serotonin syndrome [Recovering/Resolving]
